FAERS Safety Report 24200905 (Version 5)
Quarter: 2024Q4

REPORT INFORMATION
  Report Type: Spontaneous
  Country: US (occurrence: US)
  Receive Date: 20240812
  Receipt Date: 20241125
  Transmission Date: 20250114
  Serious: No
  Sender: NOVARTIS
  Company Number: US-002147023-NVSC2024US162768

PATIENT
  Sex: Female

DRUGS (1)
  1. COSENTYX [Suspect]
     Active Substance: SECUKINUMAB
     Indication: Product used for unknown indication
     Dosage: 300 MG, QW (THIGH)
     Route: 065
     Dates: start: 20240808

REACTIONS (5)
  - Pain [Unknown]
  - Device malfunction [Unknown]
  - Anxiety [Unknown]
  - Accidental exposure to product [Unknown]
  - Product dose omission issue [Unknown]
